FAERS Safety Report 21780071 (Version 1)
Quarter: 2022Q4

REPORT INFORMATION
  Report Type: Spontaneous
  Country: GB (occurrence: GB)
  Receive Date: 20221226
  Receipt Date: 20221226
  Transmission Date: 20230113
  Serious: Yes (Other)
  Sender: FDA-Public Use
  Company Number: None

PATIENT
  Age: 84 Year
  Sex: Female
  Weight: 82 kg

DRUGS (14)
  1. APIXABAN [Suspect]
     Active Substance: APIXABAN
     Indication: Atrial fibrillation
     Dates: start: 20220517
  2. QVAR [Concomitant]
     Active Substance: BECLOMETHASONE DIPROPIONATE
     Route: 055
     Dates: start: 20220331
  3. AMIODARONE [Concomitant]
     Active Substance: AMIODARONE
     Dosage: UNTIL CARDIOVERSION OR OTHER ADV
     Dates: start: 20220923
  4. BUMETANIDE [Concomitant]
     Active Substance: BUMETANIDE
     Dosage: 3 TABLETS IN THE MORNING AND TWO AT LUNCHTIME
     Dates: start: 20220623
  5. WARFARIN SODIUM [Concomitant]
     Active Substance: WARFARIN SODIUM
     Dosage: AS DIRECTED
     Dates: start: 20220302
  6. CODEINE PHOSPHATE [Concomitant]
     Active Substance: CODEINE PHOSPHATE
     Dosage: TAKE ONE TO THREE TABLETS UP TO 4 TIMES/DAY ALO
     Dates: start: 20220804
  7. MONTELUKAST [Concomitant]
     Active Substance: MONTELUKAST SODIUM
     Dates: start: 20220509
  8. ACETAMINOPHEN [Concomitant]
     Active Substance: ACETAMINOPHEN
     Dosage: TAKE 1 OR 2 TABLETS UP TO 4 TIMES/DAY
     Dates: start: 20221121
  9. POLYETHYLENE GLYCOL 3350\POTASSIUM CHLORIDE\SODIUM BICARBONATE\SODIUM [Concomitant]
     Active Substance: POLYETHYLENE GLYCOL 3350\POTASSIUM CHLORIDE\SODIUM BICARBONATE\SODIUM CHLORIDE
     Dosage: 1-2 DAILY
     Dates: start: 20211221
  10. LACTULOSE [Concomitant]
     Active Substance: LACTULOSE
     Dates: start: 20211221
  11. OMEPRAZOLE [Concomitant]
     Active Substance: OMEPRAZOLE
     Dosage: ADVISED WHEN STARTING APIXABAN
     Dates: start: 20211221
  12. RISEDRONATE SODIUM [Concomitant]
     Active Substance: RISEDRONATE SODIUM
     Dosage: AS DIRECTED UNTIL ADVISED NO LO
     Dates: start: 20211221
  13. CALCIUM CARBONATE\VITAMIN D [Concomitant]
     Active Substance: CALCIUM CARBONATE\VITAMIN D
     Dates: start: 20211221
  14. VERAPAMIL HYDROCHLORIDE [Concomitant]
     Active Substance: VERAPAMIL HYDROCHLORIDE
     Dosage: 80MG OM, 40MG IN THE DAY TIME, 80MG AGAIN IN TH
     Dates: start: 20211221

REACTIONS (1)
  - Bronchospasm [Recovered/Resolved]

NARRATIVE: CASE EVENT DATE: 20220517
